FAERS Safety Report 24162247 (Version 2)
Quarter: 2024Q4

REPORT INFORMATION
  Report Type: Spontaneous
  Country: US (occurrence: US)
  Receive Date: 20240801
  Receipt Date: 20241127
  Transmission Date: 20250115
  Serious: Yes (Other)
  Sender: PFIZER
  Company Number: US-PFIZER INC-PV202400099631

PATIENT
  Age: 66 Year
  Sex: Female

DRUGS (1)
  1. IBRANCE [Suspect]
     Active Substance: PALBOCICLIB
     Indication: Neuroendocrine carcinoma
     Dosage: 100 MG, 1 (ONE) TIME EACH DAY FOR 21 DAYS. TAKE ON DAY 1-21 ON 28 DAY CYCLE
     Route: 048

REACTIONS (2)
  - Cataract [Unknown]
  - Off label use [Unknown]
